FAERS Safety Report 10038110 (Version 1)
Quarter: 2014Q1

REPORT INFORMATION
  Report Type: Spontaneous
  Country: US (occurrence: None)
  Receive Date: 20140306
  Receipt Date: 20140306
  Transmission Date: 20141002
  Serious: Yes (Hospitalization)
  Sender: FDA-Public Use
  Company Number: 163-21880-12112083

PATIENT
  Age: 76 Year
  Sex: Male

DRUGS (23)
  1. REVLIMID [Suspect]
     Indication: PLASMA CELL MYELOMA
     Dosage: 10 MG, 14 IN 21 D, PO
     Route: 048
     Dates: start: 20120518, end: 20121113
  2. VICODIN ES [Concomitant]
  3. SUCRALFATE [Concomitant]
  4. TINCTURE OF OPIUM (OPIUM ALKALOIDS TOTAL) [Concomitant]
  5. CHOLESTYRAMINE (COLESTYRAMINE) [Concomitant]
  6. ENSURE PLUS [Concomitant]
  7. ZOMETA (ZOLEDRONIC ACID) [Concomitant]
  8. ZOFRAN (ONDANSETRON HYDROCHLORIDE) [Concomitant]
  9. AMLODIPINE [Concomitant]
  10. CALCIUM [Concomitant]
  11. LEVSIN (HYOSCYAMINE SULFATE) [Concomitant]
  12. DEXAMETHASONE [Concomitant]
  13. VELCADE (BORTEZOMIB) [Concomitant]
  14. LEVAQUIN  (LEVOFLOXACIN) [Concomitant]
  15. FLAGYL (METRONIDAZOLE) [Concomitant]
  16. LOSARTAN [Concomitant]
  17. HYDROCHLOROTHIAZIDE [Concomitant]
  18. VITAMIN D (ERGOCALCIFEROL) [Concomitant]
  19. SIMVASTATIN [Concomitant]
  20. ASPIRIN (ACETYLSALICYLIC ACID) [Concomitant]
  21. CLONAZEPAM [Concomitant]
  22. PERIDEX (CHLORHEXIDINE GLUCONATE) [Concomitant]
  23. AMBIEN (ZOLPIDEM TARTRATE) [Concomitant]

REACTIONS (3)
  - Gastroenteritis [None]
  - Neuropathy peripheral [None]
  - Diarrhoea [None]
